FAERS Safety Report 14124845 (Version 1)
Quarter: 2017Q4

REPORT INFORMATION
  Report Type: Spontaneous
  Country: US (occurrence: None)
  Receive Date: 20171025
  Receipt Date: 20171025
  Transmission Date: 20180321
  Serious: No
  Sender: FDA-Public Use
  Company Number: None

PATIENT
  Age: 77 Year
  Sex: Male

DRUGS (1)
  1. H.P. ACTHAR [Suspect]
     Active Substance: CORTICOTROPIN

REACTIONS (6)
  - Blister [None]
  - Fatigue [None]
  - Arthralgia [None]
  - Nail discolouration [None]
  - Abdominal distension [None]
  - Appetite disorder [None]

NARRATIVE: CASE EVENT DATE: 20171025
